FAERS Safety Report 19044424 (Version 1)
Quarter: 2021Q1

REPORT INFORMATION
  Report Type: Spontaneous
  Country: NZ (occurrence: NZ)
  Receive Date: 20210323
  Receipt Date: 20210323
  Transmission Date: 20210420
  Serious: Yes (Hospitalization)
  Sender: FDA-Public Use
  Company Number: NZ-MYLANLABS-2021M1017636

PATIENT
  Age: 59 Year
  Sex: Male

DRUGS (8)
  1. IRON [Concomitant]
     Active Substance: IRON
     Indication: SUPPLEMENTATION THERAPY
     Route: 065
  2. MULTIVITAMINS                      /07504101/ [Concomitant]
     Active Substance: VITAMINS
     Indication: SUPPLEMENTATION THERAPY
     Route: 065
  3. HYDROCORTISONE. [Suspect]
     Active Substance: HYDROCORTISONE
     Indication: CRONKHITE-CANADA SYNDROME
     Dosage: HIGH DOSE
     Route: 042
     Dates: start: 2013
  4. PREDNISONE. [Suspect]
     Active Substance: PREDNISONE
     Indication: CRONKHITE-CANADA SYNDROME
     Route: 048
     Dates: start: 2013
  5. AZATHIOPRINE. [Suspect]
     Active Substance: AZATHIOPRINE
     Indication: CRONKHITE-CANADA SYNDROME
     Dosage: THERAPEUTIC DOSES
     Route: 065
     Dates: start: 2013
  6. ZINC. [Concomitant]
     Active Substance: ZINC
     Indication: SUPPLEMENTATION THERAPY
     Route: 065
  7. CIPROFLOXACIN. [Concomitant]
     Active Substance: CIPROFLOXACIN
     Indication: PROPHYLAXIS
     Route: 048
  8. INFLIXIMAB [Concomitant]
     Active Substance: INFLIXIMAB
     Indication: CRONKHITE-CANADA SYNDROME
     Dosage: 5 MILLIGRAM/KILOGRAM AT 0, 2, 6 WEEKS, THEN EIGHT WEEKLY MAINTENANCE INFUSIONS

REACTIONS (1)
  - Drug ineffective [Unknown]

NARRATIVE: CASE EVENT DATE: 2013
